FAERS Safety Report 12688429 (Version 3)
Quarter: 2016Q4

REPORT INFORMATION
  Report Type: Report from Study
  Country: None (occurrence: BR)
  Receive Date: 20160825
  Receipt Date: 20161010
  Transmission Date: 20170207
  Serious: Yes (Hospitalization, Other)
  Sender: FDA-Public Use
  Company Number: BR-ABBVIE-16P-020-1707034-00

PATIENT
  Age: 19 Year
  Sex: Male
  Weight: 51 kg

DRUGS (2)
  1. HUMIRA [Suspect]
     Active Substance: ADALIMUMAB
     Dosage: LOADING DOSE,WEEK 0
     Route: 058
     Dates: start: 20160812, end: 20160812
  2. HUMIRA [Suspect]
     Active Substance: ADALIMUMAB
     Indication: COLITIS ULCERATIVE
     Dosage: LOADING DOSE,WEEK 0
     Route: 058
     Dates: start: 20160809, end: 20160809

REACTIONS (16)
  - Gastrointestinal haemorrhage [Recovering/Resolving]
  - Abdominal pain [Not Recovered/Not Resolved]
  - Diarrhoea [Not Recovered/Not Resolved]
  - Malaise [Unknown]
  - Pyrexia [Not Recovered/Not Resolved]
  - Blood test abnormal [Recovering/Resolving]
  - Gastrointestinal neoplasm [Unknown]
  - Gastrointestinal sounds abnormal [Unknown]
  - Asthenia [Not Recovered/Not Resolved]
  - Depressed mood [Not Recovered/Not Resolved]
  - Investigation abnormal [Unknown]
  - Pyrexia [Recovered/Resolved]
  - Pyrexia [Recovered/Resolved]
  - Weight decreased [Recovering/Resolving]
  - Pallor [Unknown]
  - Facial wasting [Unknown]

NARRATIVE: CASE EVENT DATE: 201608
